FAERS Safety Report 13675853 (Version 3)
Quarter: 2017Q3

REPORT INFORMATION
  Report Type: Report from Study
  Country: US (occurrence: BR)
  Receive Date: 20170621
  Receipt Date: 20170918
  Transmission Date: 20171127
  Serious: Yes (Death, Hospitalization, Other)
  Sender: FDA-Public Use
  Company Number: US-SUNOVION-2017SUN002629

PATIENT
  Age: 76 Year
  Sex: Male

DRUGS (1)
  1. GLYCOPYRROLATE. [Suspect]
     Active Substance: GLYCOPYRROLATE
     Indication: PULMONARY FIBROSIS
     Dosage: 1 IN MORNING AND 1 IN NIGHT, BID
     Route: 055
     Dates: start: 201602

REACTIONS (8)
  - Condition aggravated [Unknown]
  - Drug ineffective for unapproved indication [Unknown]
  - Product use in unapproved indication [Unknown]
  - Weight decreased [Unknown]
  - Disease progression [Fatal]
  - Pulmonary fibrosis [Unknown]
  - Gait disturbance [Unknown]
  - Dyspnoea [Unknown]

NARRATIVE: CASE EVENT DATE: 201608
